FAERS Safety Report 20435515 (Version 1)
Quarter: 2022Q1

REPORT INFORMATION
  Report Type: Spontaneous
  Country: PT (occurrence: PT)
  Receive Date: 20220206
  Receipt Date: 20220206
  Transmission Date: 20220424
  Serious: Yes (Hospitalization, Other)
  Sender: FDA-Public Use
  Company Number: PT-INFARMED-R202201-928

PATIENT
  Age: 54 Year
  Sex: Female
  Weight: 61 kg

DRUGS (1)
  1. OXALIPLATIN [Suspect]
     Active Substance: OXALIPLATIN
     Indication: Colon neoplasm
     Dosage: 2ND CYCLE QT FOLFOX (INTRAVENOUS-WEIGHT-ADJUSTED)
     Route: 042
     Dates: start: 20211227, end: 20211227

REACTIONS (5)
  - Dysmetria [Recovered/Resolved]
  - Hypoxia [Recovered/Resolved]
  - Dyspnoea [Recovered/Resolved]
  - Paraesthesia [Recovered/Resolved]
  - Wheezing [Recovered/Resolved]

NARRATIVE: CASE EVENT DATE: 20211227
